FAERS Safety Report 9876390 (Version 1)
Quarter: 2014Q1

REPORT INFORMATION
  Report Type: Spontaneous
  Country: US (occurrence: None)
  Receive Date: 20140205
  Receipt Date: 20140205
  Transmission Date: 20141002
  Serious: Yes (Hospitalization)
  Sender: FDA-Public Use
  Company Number: None

PATIENT
  Age: 69 Year
  Sex: Female
  Weight: 90.2 kg

DRUGS (3)
  1. CYTARABINE [Suspect]
     Dates: end: 20131227
  2. DAUNORUBICIN [Suspect]
     Dates: end: 20131222
  3. G-CSF (FILGRASTIM, AMGEN) [Suspect]
     Dates: end: 20140120

REACTIONS (7)
  - Abdominal pain [None]
  - Diarrhoea [None]
  - Enteritis [None]
  - Blood culture positive [None]
  - Bacteroides test positive [None]
  - Toxicity to various agents [None]
  - Intestinal ischaemia [None]
